FAERS Safety Report 8729694 (Version 2)
Quarter: 2013Q3

REPORT INFORMATION
  Report Type: Spontaneous
  Country: US (occurrence: US)
  Receive Date: 20120817
  Receipt Date: 20130705
  Transmission Date: 20140515
  Serious: Yes (Hospitalization, Other)
  Sender: FDA-Public Use
  Company Number: PHEH2012US016043

PATIENT
  Sex: Male

DRUGS (6)
  1. TRILEPTAL [Suspect]
     Indication: CONVULSION
     Dosage: 300 MG, BID
     Dates: start: 20080911
  2. SINGULAIR [Concomitant]
     Dosage: 5 MG, QD
  3. CLARITIN [Concomitant]
     Dosage: 10 MG, QD
  4. KEPPRA [Concomitant]
     Dosage: 750 MG, BID
  5. ZONEGRAN [Concomitant]
     Dosage: 100 MG, QD
  6. ZOFRAN [Concomitant]
     Dosage: 4 MG, QD
     Route: 048

REACTIONS (36)
  - Pyrexia [Unknown]
  - Rash maculo-papular [Recovered/Resolved]
  - Shigella infection [Unknown]
  - Enteritis [Unknown]
  - Stevens-Johnson syndrome [Unknown]
  - Vision blurred [Unknown]
  - Asthma [Unknown]
  - Tinnitus [Unknown]
  - Influenza [Unknown]
  - Photophobia [Unknown]
  - Autism [Unknown]
  - Haemoptysis [Unknown]
  - Epistaxis [Unknown]
  - Fall [Unknown]
  - Excoriation [Unknown]
  - Contusion [Unknown]
  - Joint injury [Unknown]
  - Speech disorder developmental [Unknown]
  - Speech disorder [Unknown]
  - Learning disorder [Unknown]
  - Developmental coordination disorder [Unknown]
  - Skin lesion [Unknown]
  - Memory impairment [Unknown]
  - Epilepsy [Unknown]
  - Migraine [Unknown]
  - Adenoidal hypertrophy [Unknown]
  - Hypoaesthesia [Unknown]
  - Anxiety [Unknown]
  - Depression [Unknown]
  - Hallucination, visual [Unknown]
  - Urinary incontinence [Unknown]
  - Tonsillar hypertrophy [Unknown]
  - Headache [Unknown]
  - Arthralgia [Unknown]
  - Neck pain [Unknown]
  - Enuresis [Unknown]
